FAERS Safety Report 4746429-3 (Version None)
Quarter: 2005Q3

REPORT INFORMATION
  Report Type: 
  Country: None (occurrence: None)
  Receive Date: 20050816
  Receipt Date: 20050816
  Transmission Date: 20060218
  Serious: Yes (Other)
  Sender: FDA-Public Use
  Company Number: None

PATIENT
  Age: 44 Year
  Sex: Female
  Weight: 72.3487 kg

DRUGS (2)
  1. KLONOPIN [Suspect]
     Indication: POST-TRAUMATIC STRESS DISORDER
     Dosage: 2 MG PO QID [PRIOR TO 2004 TO CURRENT]
     Dates: start: 20040101
  2. LEXAPRO [Concomitant]

REACTIONS (2)
  - DRUG INEFFECTIVE [None]
  - THERAPEUTIC RESPONSE UNEXPECTED WITH DRUG SUBSTITUTION [None]
